FAERS Safety Report 11331986 (Version 1)
Quarter: 2015Q3

REPORT INFORMATION
  Report Type: Spontaneous
  Country: US (occurrence: US)
  Receive Date: 20150803
  Receipt Date: 20150803
  Transmission Date: 20151125
  Serious: Yes (Hospitalization)
  Sender: FDA-Public Use
  Company Number: US-ELI_LILLY_AND_COMPANY-US200807003821

PATIENT
  Sex: Male

DRUGS (1)
  1. ZYPREXA [Suspect]
     Active Substance: OLANZAPINE

REACTIONS (1)
  - Intentional overdose [Recovered/Resolved]

NARRATIVE: CASE EVENT DATE: 2008
